FAERS Safety Report 6653107 (Version 4)
Quarter: 2020Q3

REPORT INFORMATION
  Report Type: Report from Study
  Country: US (occurrence: US)
  Receive Date: 20080530
  Receipt Date: 20090722
  Transmission Date: 20201105
  Serious: Yes (Hospitalization)
  Sender: FDA-Public Use
  Company Number: US-ROCHE-566017

PATIENT
  Age: 86 Year
  Sex: Female

DRUGS (7)
  1. LISINOPRIL. [Concomitant]
     Active Substance: LISINOPRIL
     Dosage: DOSAGE REPORTED AS DAILY
  2. PAXIL [Concomitant]
     Active Substance: PAROXETINE HYDROCHLORIDE
     Dosage: DOSAGE REPORTED AS DAILY ONE AS PER NEEDED.
  3. PREMARIN [Concomitant]
     Active Substance: ESTROGENS, CONJUGATED
     Dosage: DOSAGE REPORTED AS DAILY
  4. HCTZ [Concomitant]
     Active Substance: HYDROCHLOROTHIAZIDE
  5. VICODIN [Concomitant]
     Active Substance: ACETAMINOPHEN\HYDROCODONE BITARTRATE
     Indication: ARTHRITIS
     Dosage: AS PER NEEDED
  6. ARMOUR THYROID [Concomitant]
     Active Substance: THYROID, PORCINE
  7. IBANDRONIC ACID. [Suspect]
     Active Substance: IBANDRONIC ACID
     Indication: PRODUCT USED FOR UNKNOWN INDICATION
     Route: 065
     Dates: end: 20080427

REACTIONS (6)
  - Fall [None]
  - Syncope [Unknown]
  - Arthritis [Not Recovered/Not Resolved]
  - Cardiac disorder [Recovering/Resolving]
  - Head injury [Recovering/Resolving]
  - Dizziness [Recovering/Resolving]

NARRATIVE: CASE EVENT DATE: 20080401
